FAERS Safety Report 15260653 (Version 4)
Quarter: 2018Q4

REPORT INFORMATION
  Report Type: Spontaneous
  Country: US (occurrence: US)
  Receive Date: 20180809
  Receipt Date: 20181119
  Transmission Date: 20190204
  Serious: Yes (Other)
  Sender: FDA-Public Use
  Company Number: US-BAYER-2018-144675

PATIENT
  Age: 35 Year
  Sex: Female
  Weight: 93.8 kg

DRUGS (7)
  1. MIRENA [Suspect]
     Active Substance: LEVONORGESTREL
     Indication: DYSMENORRHOEA
  2. MIRENA [Suspect]
     Active Substance: LEVONORGESTREL
     Indication: MENORRHAGIA
  3. NORVASC [Concomitant]
     Active Substance: AMLODIPINE BESYLATE
  4. MIRENA [Suspect]
     Active Substance: LEVONORGESTREL
     Indication: CONTRACEPTION
     Dosage: 20 MCG/24HR, CONT
     Route: 015
     Dates: start: 20180724, end: 20180810
  5. MIRENA [Suspect]
     Active Substance: LEVONORGESTREL
     Indication: MENOMETRORRHAGIA
  6. MIRENA [Suspect]
     Active Substance: LEVONORGESTREL
     Indication: UTERINE LEIOMYOMA
  7. MIRENA [Suspect]
     Active Substance: LEVONORGESTREL
     Indication: DYSFUNCTIONAL UTERINE BLEEDING

REACTIONS (12)
  - Fatigue [Recovered/Resolved]
  - Device difficult to use [Recovered/Resolved]
  - Micturition urgency [Recovered/Resolved]
  - Embedded device [Recovered/Resolved]
  - Endometriosis [Recovered/Resolved]
  - Pollakiuria [Recovered/Resolved]
  - Anaemia [Recovered/Resolved]
  - Abdominal pain lower [Recovered/Resolved]
  - Dizziness exertional [Recovered/Resolved]
  - Device deployment issue [Recovered/Resolved]
  - Uterine haemorrhage [Recovered/Resolved]
  - Procedural nausea [Recovered/Resolved]

NARRATIVE: CASE EVENT DATE: 2018
